FAERS Safety Report 10500982 (Version 1)
Quarter: 2014Q4

REPORT INFORMATION
  Report Type: Spontaneous
  Country: US (occurrence: US)
  Receive Date: 20141007
  Receipt Date: 20141007
  Transmission Date: 20150528
  Serious: No
  Sender: FDA-Public Use
  Company Number: US-ASTRAZENECA-2014SE69914

PATIENT
  Age: 32 Year
  Sex: Female
  Weight: 65.8 kg

DRUGS (3)
  1. QUETIAPINE FUMURATE [Suspect]
     Active Substance: QUETIAPINE FUMARATE
     Indication: SLEEP DISORDER
     Dosage: 25 MG BID AM AND PM
     Route: 048
     Dates: start: 2012, end: 2012
  2. VITAMINS [Concomitant]
     Active Substance: VITAMINS
     Dosage: NR NR
     Route: 048
  3. IBUPROFEN. [Concomitant]
     Active Substance: IBUPROFEN
     Dosage: NR PRN
     Route: 048

REACTIONS (8)
  - Headache [Unknown]
  - Insomnia [Unknown]
  - Adverse event [Unknown]
  - Weight increased [Unknown]
  - Product use issue [Unknown]
  - Chest pain [Unknown]
  - Feeling abnormal [Unknown]
  - Increased appetite [Unknown]

NARRATIVE: CASE EVENT DATE: 2012
